FAERS Safety Report 22105852 (Version 1)
Quarter: 2023Q1

REPORT INFORMATION
  Report Type: Spontaneous
  Country: US (occurrence: US)
  Receive Date: 20230317
  Receipt Date: 20230317
  Transmission Date: 20230418
  Serious: No
  Sender: FDA-Public Use
  Company Number: US-SANOFI-01526992

PATIENT
  Sex: Male

DRUGS (1)
  1. SELENIUM SULFIDE [Suspect]
     Active Substance: SELENIUM SULFIDE
     Indication: Fungal infection
     Dosage: UNK
     Route: 065

REACTIONS (1)
  - Product use in unapproved indication [Unknown]
